FAERS Safety Report 11199261 (Version 1)
Quarter: 2015Q2

REPORT INFORMATION
  Report Type: Spontaneous
  Country: US (occurrence: US)
  Receive Date: 20150618
  Receipt Date: 20150618
  Transmission Date: 20150821
  Serious: No
  Sender: FDA-Public Use
  Company Number: US-PFIZER INC-2015200258

PATIENT
  Age: 72 Year
  Sex: Female
  Weight: 69 kg

DRUGS (3)
  1. BOSULIF [Suspect]
     Active Substance: BOSUTINIB MONOHYDRATE
     Indication: LEUKAEMIA
     Dosage: 1600 MG, DAILY
     Route: 048
     Dates: start: 201410
  2. CETAPHIL NOS [Suspect]
     Active Substance: AVOBENZONE\OCTOCRYLENE OR TRICLOSAN
     Indication: DRY SKIN
     Dosage: UNK
     Route: 061
  3. SYNTHROID [Concomitant]
     Active Substance: LEVOTHYROXINE SODIUM
     Indication: THYROID DISORDER
     Dosage: 75 MG, UNK

REACTIONS (8)
  - Disease progression [Unknown]
  - Rash [Unknown]
  - Sunburn [Unknown]
  - Leukaemia [Unknown]
  - Therapeutic response unexpected [Unknown]
  - Overdose [Unknown]
  - Urticaria [Not Recovered/Not Resolved]
  - Pre-existing condition improved [Unknown]

NARRATIVE: CASE EVENT DATE: 20150330
